FAERS Safety Report 7928161-8 (Version None)
Quarter: 2011Q4

REPORT INFORMATION
  Report Type: 
  Country: None (occurrence: None)
  Receive Date: 20111118
  Receipt Date: 20111108
  Transmission Date: 20120403
  Serious: Yes (Hospitalization, Other)
  Sender: FDA-Public Use
  Company Number: BR-ELI_LILLY_AND_COMPANY-BR201111005480

PATIENT
  Age: 60 Year
  Sex: Male

DRUGS (7)
  1. DEXAMETHASONE [Concomitant]
     Dosage: 8 MG, UNKNOWN
     Route: 042
  2. GEMCITABINE HYDROCHLORIDE [Suspect]
     Dosage: 30 MG/M2, UNKNOWN
     Route: 065
  3. GEMCITABINE HYDROCHLORIDE [Suspect]
     Dosage: 40 MG/M2, UNKNOWN
     Route: 065
  4. GRANISETRON [Concomitant]
     Dosage: 3 MG, UNKNOWN
     Route: 042
  5. GEMCITABINE HYDROCHLORIDE [Suspect]
     Dosage: 50 MG/M2, UNKNOWN
     Route: 065
  6. CISPLATIN [Concomitant]
     Indication: HEAD AND NECK CANCER
     Dosage: 30 MG/M2, UNKNOWN
     Route: 065
  7. GEMCITABINE HYDROCHLORIDE [Suspect]
     Indication: HEAD AND NECK CANCER
     Dosage: 20 MG/M2, UNKNOWN
     Route: 065

REACTIONS (3)
  - MUCOSAL INFLAMMATION [None]
  - RADIATION SKIN INJURY [None]
  - WEIGHT DECREASED [None]
